FAERS Safety Report 10170027 (Version 1)
Quarter: 2014Q2

REPORT INFORMATION
  Report Type: Spontaneous
  Country: US (occurrence: US)
  Receive Date: 20140513
  Receipt Date: 20140513
  Transmission Date: 20141212
  Serious: Yes (Other)
  Sender: FDA-Public Use
  Company Number: US-TEVA-480786USA

PATIENT
  Age: 45 Year
  Sex: Female

DRUGS (4)
  1. NUVIGIL [Suspect]
     Route: 048
  2. LAMICTAL [Suspect]
     Indication: BIPOLAR DISORDER
  3. PROZAC [Suspect]
     Indication: BIPOLAR DISORDER
  4. GEODON [Suspect]
     Indication: BIPOLAR DISORDER

REACTIONS (1)
  - Suicidal ideation [Recovered/Resolved]
